FAERS Safety Report 7690825-1 (Version None)
Quarter: 2011Q3

REPORT INFORMATION
  Report Type: 
  Country: None (occurrence: None)
  Receive Date: 20110818
  Receipt Date: 20110805
  Transmission Date: 20111222
  Serious: No
  Sender: FDA-Public Use
  Company Number: US-B.I. PHARMACEUTICALS,INC./RIDGEFIELD-2011-BP-19355BP

PATIENT

DRUGS (2)
  1. MULTAQ [Concomitant]
  2. PRADAXA [Suspect]

REACTIONS (1)
  - ALOPECIA [None]
